FAERS Safety Report 8591941-2 (Version None)
Quarter: 2012Q3

REPORT INFORMATION
  Report Type: 
  Country: None (occurrence: None)
  Receive Date: 20120814
  Receipt Date: 20120803
  Transmission Date: 20120928
  Serious: Yes (Other)
  Sender: FDA-Public Use
  Company Number: JP-PFIZER INC-2012195816

PATIENT
  Age: 61 Year
  Sex: Male

DRUGS (1)
  1. AMIODARONE HYDROCHLORIDE [Suspect]
     Indication: PRODUCT USED FOR UNKNOWN INDICATION
     Dosage: 2 DF, DAILY
     Route: 048
     Dates: start: 20080701, end: 20120101

REACTIONS (6)
  - TREMOR [None]
  - HYPERTHYROIDISM [None]
  - HEARING IMPAIRED [None]
  - ALOPECIA [None]
  - ASTHMA [None]
  - DYSPHONIA [None]
